FAERS Safety Report 4336190-9 (Version None)
Quarter: 2004Q2

REPORT INFORMATION
  Report Type: 
  Country: None (occurrence: None)
  Receive Date: 20040407
  Receipt Date: 20040304
  Transmission Date: 20050107
  Serious: Yes (Hospitalization)
  Sender: FDA-Public Use
  Company Number: YITD20040022

PATIENT
  Age: 67 Year
  Sex: Male

DRUGS (11)
  1. MILRILA (MILRINONE) [Suspect]
     Dosage: 0.06 ML, ICC
     Dates: start: 20010716, end: 20010716
  2. MILRILA (MILRINONE) [Suspect]
     Dosage: 0.06 ML, ICC
     Dates: start: 20010818, end: 20010718
  3. PAPAVERINE HYDROCHLORIDE (PAPAVERINE HYDROCHLORIDE) [Suspect]
     Dosage: 0.12 ML, ICC
     Dates: start: 20010716, end: 20010716
  4. PAPAVERINE HYDROCHLORIDE (PAPAVERINE HYDROCHLORIDE) [Suspect]
     Dosage: 0.12 ML, ICC
     Dates: start: 20010918, end: 20010718
  5. ATROPINE [Suspect]
     Dosage: 0.03 ML, ICC
     Dates: start: 20010716, end: 20010716
  6. ATROPINE [Suspect]
     Dosage: 0.03 ML, ICC
     Dates: start: 20010718, end: 20010718
  7. REGITINE [Suspect]
     Dosage: 0.06 ML, ICC
  8. REGITINE [Suspect]
     Dosage: 0.06 ML, ICC
     Dates: start: 20010716, end: 20010716
  9. REGITINE [Suspect]
     Dosage: 0.06 ML, ICC
     Dates: start: 20010718, end: 20010718
  10. PROSTARMON (DINOPROST) [Suspect]
     Dosage: 3.2 G, ICC
     Dates: start: 20010716, end: 20010716
  11. PROSTARMON (DINOPROST) [Suspect]
     Dosage: 3.2 G, ICC
     Dates: start: 20010718, end: 20010718

REACTIONS (9)
  - DRUG INEFFECTIVE [None]
  - ERECTILE DYSFUNCTION [None]
  - FIBROSIS [None]
  - MEDICATION ERROR [None]
  - NECROSIS [None]
  - PENIS DISORDER [None]
  - POSTOPERATIVE FEVER [None]
  - PRIAPISM [None]
  - SUBCUTANEOUS HAEMATOMA [None]
